FAERS Safety Report 19967656 (Version 2)
Quarter: 2021Q4

REPORT INFORMATION
  Report Type: Spontaneous
  Country: JP (occurrence: JP)
  Receive Date: 20211019
  Receipt Date: 20211112
  Transmission Date: 20220303
  Serious: Yes (Other)
  Sender: FDA-Public Use
  Company Number: JP-NOVARTISPH-NVSJ2021JP016689

PATIENT
  Age: 53 Year
  Sex: Male

DRUGS (3)
  1. RIFAMPIN [Suspect]
     Active Substance: RIFAMPIN
     Indication: Arthritis
     Dosage: UNK
     Route: 048
  2. SULFAMETHOXAZOLE AND TRIMETHOPRIM [Suspect]
     Active Substance: SULFAMETHOXAZOLE\TRIMETHOPRIM
     Indication: Arthritis
     Dosage: UNK
     Route: 048
  3. MINOCYCLINE HYDROCHLORIDE [Suspect]
     Active Substance: MINOCYCLINE HYDROCHLORIDE
     Indication: Arthritis
     Dosage: UNK
     Route: 065

REACTIONS (5)
  - Hypothyroidism [Recovered/Resolved]
  - Leukopenia [Recovered/Resolved]
  - Hyponatraemia [Recovered/Resolved]
  - Hepatic function abnormal [Unknown]
  - Product use in unapproved indication [Unknown]
